FAERS Safety Report 5847403-6 (Version None)
Quarter: 2008Q3

REPORT INFORMATION
  Report Type: 
  Country: None (occurrence: None)
  Receive Date: 20080815
  Receipt Date: 20080808
  Transmission Date: 20090109
  Serious: Yes (Other)
  Sender: FDA-Public Use
  Company Number: US-ABBOTT-08P-163-0470066-00

PATIENT
  Sex: Male
  Weight: 108.96 kg

DRUGS (5)
  1. SYNTHROID [Suspect]
     Indication: HYPOTHYROIDISM
     Route: 048
     Dates: start: 20080601
  2. TESTOSTERONE [Concomitant]
     Indication: SWELLING
     Route: 030
     Dates: start: 20080628
  3. DURAGESIC-100 [Concomitant]
     Indication: BACK PAIN
     Route: 061
     Dates: start: 20080802
  4. VICODIN [Concomitant]
     Indication: PAIN
     Route: 048
  5. DICLOFENAC DIETHYLAMINE [Concomitant]
     Indication: SWELLING
     Route: 048
     Dates: start: 20080628

REACTIONS (3)
  - BACK PAIN [None]
  - RASH [None]
  - SKIN EXFOLIATION [None]
